FAERS Safety Report 9726009 (Version 3)
Quarter: 2014Q3

REPORT INFORMATION
  Report Type: Spontaneous
  Country: US (occurrence: US)
  Receive Date: 20131203
  Receipt Date: 20140725
  Transmission Date: 20150326
  Serious: Yes (Hospitalization)
  Sender: FDA-Public Use
  Company Number: US-BAYER-2013-143709

PATIENT
  Age: 28 Year
  Sex: Female
  Weight: 62.13 kg

DRUGS (3)
  1. IMITREX [Concomitant]
     Active Substance: SUMATRIPTAN\SUMATRIPTAN SUCCINATE
     Indication: MIGRAINE
     Dosage: UNK
     Dates: start: 2011
  2. LEXAPRO [Concomitant]
     Active Substance: ESCITALOPRAM OXALATE
     Indication: MIGRAINE
     Dosage: UNK
     Dates: start: 201112, end: 201205
  3. MIRENA [Suspect]
     Active Substance: LEVONORGESTREL
     Indication: CONTRACEPTION
     Dosage: 20 MCG/24HR, CONT
     Route: 015
     Dates: start: 20110527, end: 20120503

REACTIONS (8)
  - Dyspareunia [None]
  - Uterine perforation [None]
  - Pelvic pain [None]
  - Injury [None]
  - Emotional distress [None]
  - Device dislocation [None]
  - Device issue [None]
  - Anxiety [None]

NARRATIVE: CASE EVENT DATE: 201205
